FAERS Safety Report 20898854 (Version 1)
Quarter: 2022Q2

REPORT INFORMATION
  Report Type: Spontaneous
  Country: JP (occurrence: JP)
  Receive Date: 20220601
  Receipt Date: 20220601
  Transmission Date: 20220721
  Serious: Yes (Other)
  Sender: FDA-Public Use
  Company Number: JP-JNJFOC-20220561440

PATIENT
  Age: 3 Decade
  Sex: Male

DRUGS (5)
  1. RISPERDAL [Suspect]
     Active Substance: RISPERIDONE
     Indication: Borderline personality disorder
     Route: 048
     Dates: start: 2006, end: 2006
  2. RISPERDAL [Suspect]
     Active Substance: RISPERIDONE
     Route: 048
     Dates: start: 2006
  3. RISPERDAL [Suspect]
     Active Substance: RISPERIDONE
     Dosage: DOSE UNKNOWN
     Route: 048
     Dates: start: 2020
  4. QUETIAPINE [Concomitant]
     Active Substance: QUETIAPINE
     Dosage: DOSE UNKNOWN
     Route: 048
  5. LITHIUM CARBONATE [Concomitant]
     Active Substance: LITHIUM CARBONATE
     Dosage: DOSE UNKNOWN
     Route: 048

REACTIONS (5)
  - Neuroleptic malignant syndrome [Unknown]
  - Rhabdomyolysis [Unknown]
  - Anterograde amnesia [Unknown]
  - Product use in unapproved indication [Unknown]
  - Off label use [Unknown]

NARRATIVE: CASE EVENT DATE: 20060101
